FAERS Safety Report 7180019 (Version 6)
Quarter: 2013Q4

REPORT INFORMATION
  Report Type: Spontaneous
  Country: US (occurrence: US)
  Receive Date: 20091118
  Receipt Date: 20131204
  Transmission Date: 20140711
  Serious: Yes (Hospitalization)
  Sender: FDA-Public Use
  Company Number: US-BAYER-200938778NA

PATIENT
  Age: 21 Year
  Sex: Female
  Weight: 79 kg

DRUGS (11)
  1. YAZ [Suspect]
     Indication: PREMENSTRUAL SYNDROME
     Route: 048
     Dates: start: 2006, end: 20080615
  2. YAZ [Suspect]
     Indication: ACNE
  3. ANTIMIGRAINE PREPARATIONS [Concomitant]
     Indication: MIGRAINE
  4. ANTIBIOTICS [Concomitant]
  5. NEXIUM [Concomitant]
     Dosage: UNK
     Dates: start: 2008
  6. SEROQUEL [Concomitant]
     Dosage: 540 MG, UNK
     Dates: start: 2008
  7. PROPOXYPHENE NAPSYLATE W/ACETAMINOPHENE [Concomitant]
     Dosage: 10065 UNK, UNK
     Dates: start: 2008
  8. CEPHALEXIN [Concomitant]
     Dosage: 500 MG, UNK
     Dates: start: 2007, end: 2008
  9. DEMEROL [Concomitant]
     Indication: PAIN
     Dosage: UNK
     Dates: start: 20081219, end: 20081219
  10. LORTAB [Concomitant]
     Indication: PAIN
  11. IBUPROFEN [Concomitant]
     Dosage: UNK
     Dates: start: 20081201

REACTIONS (10)
  - Cholecystitis chronic [None]
  - Gallbladder disorder [None]
  - Pelvic pain [None]
  - Abdominal pain upper [None]
  - Nausea [None]
  - Vomiting [None]
  - Diarrhoea [None]
  - Cow^s milk intolerance [None]
  - Fat intolerance [None]
  - Epigastric discomfort [None]
